FAERS Safety Report 10513766 (Version 1)
Quarter: 2014Q4

REPORT INFORMATION
  Report Type: Spontaneous
  Country: US (occurrence: US)
  Receive Date: 20141013
  Receipt Date: 20141013
  Transmission Date: 20150528
  Serious: No
  Sender: FDA-Public Use
  Company Number: US-BAUSCH-SYM-2013-13955

PATIENT
  Age: 33 Year
  Sex: Female
  Weight: 70.37 kg

DRUGS (2)
  1. METRONIDAZOLE VAGINAL GEL [Suspect]
     Active Substance: METRONIDAZOLE
     Indication: VAGINITIS BACTERIAL
     Dates: start: 20131204, end: 20131207
  2. PROZAC [Concomitant]
     Active Substance: FLUOXETINE HYDROCHLORIDE
     Indication: PRODUCT USED FOR UNKNOWN INDICATION

REACTIONS (1)
  - Sweat discolouration [Not Recovered/Not Resolved]

NARRATIVE: CASE EVENT DATE: 20131205
